FAERS Safety Report 8201148-6 (Version None)
Quarter: 2012Q1

REPORT INFORMATION
  Report Type: 
  Country: None (occurrence: None)
  Receive Date: 20120312
  Receipt Date: 20120301
  Transmission Date: 20120608
  Serious: Yes (Other)
  Sender: FDA-Public Use
  Company Number: JP-JNJFOC-20120301914

PATIENT
  Age: 36 Year
  Sex: Male

DRUGS (4)
  1. ZONISAMIDE [Suspect]
     Indication: PRODUCT USED FOR UNKNOWN INDICATION
     Route: 048
  2. DOPASTON [Concomitant]
     Route: 065
  3. RISPERDAL [Suspect]
     Indication: PRODUCT USED FOR UNKNOWN INDICATION
     Route: 048
  4. DEPAKENE [Concomitant]
     Route: 048

REACTIONS (1)
  - NEPHROLITHIASIS [None]
